FAERS Safety Report 10137641 (Version 1)
Quarter: 2014Q2

REPORT INFORMATION
  Report Type: Spontaneous
  Country: GB (occurrence: None)
  Receive Date: 20140425
  Receipt Date: 20140425
  Transmission Date: 20141212
  Serious: No
  Sender: FDA-Public Use
  Company Number: GB2014K1378SPO

PATIENT
  Age: 41 Year
  Sex: Female
  Weight: 72.57 kg

DRUGS (1)
  1. LANSOPRAZOLE [Suspect]
     Route: 048
     Dates: start: 20110109

REACTIONS (2)
  - Vitamin B12 deficiency [None]
  - Fatigue [None]
